FAERS Safety Report 21208094 (Version 1)
Quarter: 2022Q3

REPORT INFORMATION
  Report Type: Spontaneous
  Country: FR (occurrence: FR)
  Receive Date: 20220812
  Receipt Date: 20220812
  Transmission Date: 20221026
  Serious: Yes (Life-Threatening, Hospitalization)
  Sender: FDA-Public Use
  Company Number: None

PATIENT
  Age: 37 Year
  Sex: Male
  Weight: 108 kg

DRUGS (4)
  1. ALEVE [Suspect]
     Active Substance: NAPROXEN SODIUM
     Indication: Furuncle
     Route: 048
     Dates: start: 20220719, end: 20220720
  2. AMOXICILLIN\CLAVULANIC ACID [Suspect]
     Active Substance: AMOXICILLIN\CLAVULANIC ACID
     Indication: Furuncle
     Route: 048
     Dates: start: 20220719, end: 20220720
  3. UNSPECIFIED INGREDIENT [Suspect]
     Active Substance: UNSPECIFIED INGREDIENT
     Indication: Product use in unapproved indication
     Route: 048
  4. OMEPRAZOLE SODIUM [Suspect]
     Active Substance: OMEPRAZOLE SODIUM
     Indication: Furuncle
     Route: 048
     Dates: start: 20220719, end: 20220720

REACTIONS (2)
  - Acute kidney injury [Recovering/Resolving]
  - Hepatic cytolysis [Recovering/Resolving]

NARRATIVE: CASE EVENT DATE: 20220720
